FAERS Safety Report 6723990-0 (Version None)
Quarter: 2010Q2

REPORT INFORMATION
  Report Type: 
  Country: None (occurrence: None)
  Receive Date: 20100513
  Receipt Date: 20100505
  Transmission Date: 20101027
  Serious: Yes (Hospitalization)
  Sender: FDA-Public Use
  Company Number: A0716465A

PATIENT
  Age: 58 Year
  Sex: Female

DRUGS (7)
  1. AVANDIA [Suspect]
     Indication: DIABETES MELLITUS
     Dosage: 4MG PER DAY
     Route: 048
     Dates: start: 20021101
  2. GLYBURIDE [Concomitant]
  3. COZAAR [Concomitant]
  4. HYDROCHLOROTHIAZIDE [Concomitant]
  5. METOPROLOL TARTRATE [Concomitant]
  6. NORVASC [Concomitant]
     Dates: end: 20061101
  7. METFORMIN HYDROCHLORIDE [Concomitant]
     Dates: end: 20061101

REACTIONS (6)
  - CARDIAC FAILURE CONGESTIVE [None]
  - DIABETES MELLITUS INADEQUATE CONTROL [None]
  - DIASTOLIC DYSFUNCTION [None]
  - MYOCARDIAL INFARCTION [None]
  - SHOCK [None]
  - TREATMENT NONCOMPLIANCE [None]
